FAERS Safety Report 5244580-5 (Version None)
Quarter: 2007Q1

REPORT INFORMATION
  Report Type: 
  Country: None (occurrence: None)
  Receive Date: 20070222
  Receipt Date: 20070213
  Transmission Date: 20070707
  Serious: Yes (Hospitalization)
  Sender: FDA-Public Use
  Company Number: ES-AMGEN-UK211601

PATIENT
  Sex: Male

DRUGS (1)
  1. PALIFERMIN [Suspect]
     Route: 065

REACTIONS (2)
  - NEUROPATHY PERIPHERAL [None]
  - NEUROTOXICITY [None]
